FAERS Safety Report 4859918-8 (Version None)
Quarter: 2005Q4

REPORT INFORMATION
  Report Type: 
  Country: None (occurrence: None)
  Receive Date: 20051219
  Receipt Date: 20050321
  Transmission Date: 20060501
  Serious: No
  Sender: FDA-Public Use
  Company Number: US-BRISTOL-MYERS SQUIBB COMPANY-12905766

PATIENT
  Sex: Female

DRUGS (1)
  1. DOVONEX [Suspect]
     Indication: ECZEMA
     Route: 061
     Dates: start: 20050315

REACTIONS (2)
  - ECZEMA [None]
  - SKIN LESION [None]
